FAERS Safety Report 24279377 (Version 1)
Quarter: 2024Q3

REPORT INFORMATION
  Report Type: Spontaneous
  Country: RO (occurrence: RO)
  Receive Date: 20240903
  Receipt Date: 20240903
  Transmission Date: 20241016
  Serious: Yes (Death, Hospitalization)
  Sender: BIOGEN
  Company Number: RO-BIOGEN-2024BI01280536

PATIENT
  Sex: Female
  Weight: 6.2 kg

DRUGS (1)
  1. SPINRAZA [Suspect]
     Active Substance: NUSINERSEN
     Indication: Spinal muscular atrophy
     Route: 050
     Dates: start: 20231215

REACTIONS (4)
  - Cardio-respiratory arrest [Fatal]
  - Brain oedema [Fatal]
  - Pneumonia [Fatal]
  - Cachexia [Fatal]
